FAERS Safety Report 16354371 (Version 4)
Quarter: 2020Q4

REPORT INFORMATION
  Report Type: Report from Study
  Country: CA (occurrence: CA)
  Receive Date: 20190524
  Receipt Date: 20201127
  Transmission Date: 20210113
  Serious: Yes (Other)
  Sender: FDA-Public Use
  Company Number: PHHY2018CA147774

PATIENT
  Age: 64 Year
  Sex: Female

DRUGS (2)
  1. GLIVEC [Suspect]
     Active Substance: IMATINIB MESYLATE
     Indication: GASTROINTESTINAL STROMAL TUMOUR
     Dosage: 400 MG, QD
     Route: 048
     Dates: start: 20180620, end: 20201027
  2. LETROZOLE. [Suspect]
     Active Substance: LETROZOLE
     Indication: BREAST CANCER
     Route: 065

REACTIONS (19)
  - Acne [Recovering/Resolving]
  - Hyperhidrosis [Recovering/Resolving]
  - Pain [Unknown]
  - Nausea [Recovering/Resolving]
  - Syncope [Recovering/Resolving]
  - Thyroid neoplasm [Unknown]
  - Pain in extremity [Unknown]
  - Dizziness [Recovering/Resolving]
  - Muscle spasms [Unknown]
  - Illness [Recovered/Resolved]
  - Gait disturbance [Unknown]
  - Dry skin [Unknown]
  - Thyroid cancer [Unknown]
  - Diarrhoea [Recovering/Resolving]
  - Nephrolithiasis [Unknown]
  - Hypothyroidism [Unknown]
  - Pruritus [Unknown]
  - Vomiting [Unknown]
  - Fatigue [Unknown]

NARRATIVE: CASE EVENT DATE: 201904
